FAERS Safety Report 15508204 (Version 1)
Quarter: 2018Q4

REPORT INFORMATION
  Report Type: Spontaneous
  Country: FR (occurrence: FR)
  Receive Date: 20181016
  Receipt Date: 20181016
  Transmission Date: 20190205
  Serious: Yes (Death, Other)
  Sender: FDA-Public Use
  Company Number: FR-PFIZER INC-2018414835

PATIENT
  Age: 64 Year
  Sex: Male
  Weight: 79 kg

DRUGS (25)
  1. VISMED [Concomitant]
     Active Substance: HYALURONATE SODIUM
     Dosage: 1 DF, 1X/DAY
     Route: 031
  2. DACRYOSERUM [BORIC ACID;SODIUM BORATE] [Concomitant]
     Dosage: 1 DF, 1X/DAY
     Route: 031
  3. BARACLUDE [Concomitant]
     Active Substance: ENTECAVIR
     Indication: HEPATITIS B VIRUS TEST POSITIVE
     Dosage: 1 DF, 1X/DAY
     Route: 048
     Dates: start: 20180412
  4. AMIKLIN [AMIKACIN] [Concomitant]
     Dates: start: 20180814
  5. NORADRENALINE [NOREPINEPHRINE] [Concomitant]
     Route: 011
     Dates: start: 20180806
  6. TIENAM [Concomitant]
     Active Substance: CILASTATIN SODIUM\IMIPENEM
     Route: 065
     Dates: start: 20180814
  7. RITUXIMAB. [Concomitant]
     Active Substance: RITUXIMAB
     Indication: MANTLE CELL LYMPHOMA
     Route: 042
     Dates: end: 20180709
  8. DOBUTAMINE [Concomitant]
     Active Substance: DOBUTAMINE\DOBUTAMINE HYDROCHLORIDE
     Indication: ORTHOPNOEA
     Route: 042
     Dates: start: 20180804
  9. CARTEOL [CARTEOLOL HYDROCHLORIDE] [Concomitant]
     Dosage: 1 DF, 1X/DAY
     Route: 031
  10. FUROSEMIDE. [Concomitant]
     Active Substance: FUROSEMIDE
     Dosage: 500 MG, 1X/DAY
     Route: 042
  11. CORTANCYL [Concomitant]
     Active Substance: PREDNISONE
     Indication: MANTLE CELL LYMPHOMA
     Route: 048
     Dates: start: 20180709, end: 20180713
  12. DOXORUBICIN HCL [Suspect]
     Active Substance: DOXORUBICIN HYDROCHLORIDE
     Indication: MANTLE CELL LYMPHOMA
     Dosage: 50 MG/M2, UNK
     Route: 042
     Dates: start: 20180412, end: 20180709
  13. ZELITREX [Concomitant]
     Active Substance: VALACYCLOVIR HYDROCHLORIDE
     Dosage: 500 MG, 1X/DAY
     Route: 048
  14. HYPNOVEL [MIDAZOLAM HYDROCHLORIDE] [Concomitant]
     Dosage: 10 MG, UNK
     Route: 042
     Dates: start: 20180806
  15. XANAX [Concomitant]
     Active Substance: ALPRAZOLAM
     Dosage: 3 MG, 1X/DAY
     Route: 048
  16. NOCTAMIDE [Concomitant]
     Active Substance: LORMETAZEPAM
     Dosage: 4 MG, 1X/DAY
     Route: 048
  17. AUGMENTIN [Concomitant]
     Active Substance: AMOXICILLIN\CLAVULANATE POTASSIUM
     Route: 065
     Dates: start: 20180809, end: 20180810
  18. BACTRIM [Concomitant]
     Active Substance: SULFAMETHOXAZOLE\TRIMETHOPRIM
     Dosage: 400 MG, 1X/DAY
     Route: 048
  19. CYCLOPHOSPHAMIDE. [Concomitant]
     Active Substance: CYCLOPHOSPHAMIDE
     Indication: MANTLE CELL LYMPHOMA
     Route: 042
     Dates: end: 20180709
  20. GLUCONATE DE POTASSIUM [Concomitant]
     Dosage: 6 DF, 1X/DAY
     Route: 048
  21. TAZOCILLINE [Concomitant]
     Active Substance: PIPERACILLIN SODIUM\TAZOBACTAM SODIUM
     Route: 065
     Dates: start: 20180806
  22. DIFFU K [Concomitant]
     Active Substance: POTASSIUM CHLORIDE
     Dosage: 12 DF, 1X/DAY
     Route: 048
  23. HYDROCORTISONE. [Concomitant]
     Active Substance: HYDROCORTISONE
     Route: 065
     Dates: start: 20180808, end: 20180813
  24. MOPRAL [OMEPRAZOLE MAGNESIUM] [Concomitant]
     Indication: GASTROOESOPHAGEAL REFLUX DISEASE
     Dosage: 20 MG, 1X/DAY
     Route: 048
  25. FLUDROCORTISONE [Concomitant]
     Active Substance: FLUDROCORTISONE
     Route: 065
     Dates: start: 20180816

REACTIONS (2)
  - Cardiac failure [Not Recovered/Not Resolved]
  - Cardiogenic shock [Fatal]

NARRATIVE: CASE EVENT DATE: 20180803
